FAERS Safety Report 10060964 (Version 2)
Quarter: 2014Q2

REPORT INFORMATION
  Report Type: Spontaneous
  Country: US (occurrence: US)
  Receive Date: 20140405
  Receipt Date: 20140405
  Transmission Date: 20141212
  Serious: Yes (Other)
  Sender: FDA-Public Use
  Company Number: US-GE HEALTHCARE MEDICAL DIAGNOSTICS-OSCN-PR-0806S-0410

PATIENT
  Sex: Male

DRUGS (2)
  1. OPTIMARK [Suspect]
     Indication: PRODUCT USED FOR UNKNOWN INDICATION
     Route: 042
     Dates: start: 20050111, end: 20050111
  2. OPTIMARK [Suspect]
     Route: 042
     Dates: start: 20060419, end: 20060419

REACTIONS (1)
  - Nephrogenic systemic fibrosis [Not Recovered/Not Resolved]
